FAERS Safety Report 8237544-0 (Version None)
Quarter: 2012Q1

REPORT INFORMATION
  Report Type: 
  Country: None (occurrence: None)
  Receive Date: 20120309
  Receipt Date: 20110107
  Transmission Date: 20120608
  Serious: Yes (Other)
  Sender: FDA-Public Use
  Company Number: PHHY2010US74055

PATIENT
  Age: 43 Year
  Sex: Male

DRUGS (3)
  1. NUVIGIL [Concomitant]
  2. ALEVE /00256202/ (NAPROXEN SODIUM) [Concomitant]
  3. EXTAVIA [Suspect]
     Indication: MULTIPLE SCLEROSIS
     Dosage: 0.25 MG, QOD, SUBCUTANEOUS ; 0.125 MG, QOD, SUBCUTANEOUS
     Route: 058
     Dates: start: 20100907

REACTIONS (1)
  - HEPATIC ENZYME INCREASED [None]
